FAERS Safety Report 8616461-8 (Version None)
Quarter: 2012Q3

REPORT INFORMATION
  Report Type: 
  Country: None (occurrence: None)
  Receive Date: 20120823
  Receipt Date: 20120816
  Transmission Date: 20120928
  Serious: Yes (Hospitalization)
  Sender: FDA-Public Use
  Company Number: GB-009507513-1208GBR007741

PATIENT

DRUGS (2)
  1. LENALIDOMIDE [Suspect]
     Indication: MULTIPLE MYELOMA
     Dosage: 10 MG, QD
     Route: 048
     Dates: start: 20120719, end: 20120812
  2. MK-0683 [Suspect]
     Indication: MULTIPLE MYELOMA
     Dosage: 300 MG, QD
     Route: 048
     Dates: start: 20120719, end: 20120812

REACTIONS (3)
  - NECK PAIN [None]
  - PLATELET COUNT DECREASED [None]
  - CONFUSIONAL STATE [None]
